FAERS Safety Report 9086129 (Version 1)
Quarter: 2013Q1

REPORT INFORMATION
  Report Type: Report from Study
  Country: US (occurrence: US)
  Receive Date: 20130130
  Receipt Date: 20130130
  Transmission Date: 20140127
  Serious: No
  Sender: FDA-Public Use
  Company Number: US-ABBOTT-12P-163-0981941-00

PATIENT
  Age: 39 Year
  Sex: Male

DRUGS (5)
  1. HUMIRA [Suspect]
     Indication: CROHN^S DISEASE
     Dates: start: 20120820, end: 20120820
  2. HUMIRA [Suspect]
     Dates: start: 20120903, end: 20120903
  3. HUMIRA [Suspect]
  4. VENTOLIN [Concomitant]
     Indication: ASTHMA
     Dosage: DAILY
     Route: 055
  5. SEREVENT [Concomitant]
     Indication: ASTHMA
     Dosage: DAILY
     Route: 055

REACTIONS (2)
  - Back pain [Not Recovered/Not Resolved]
  - Musculoskeletal discomfort [Unknown]
